FAERS Safety Report 8325508-8 (Version None)
Quarter: 2012Q2

REPORT INFORMATION
  Report Type: 
  Country: None (occurrence: None)
  Receive Date: 20120501
  Receipt Date: 20120418
  Transmission Date: 20120825
  Serious: Yes (Hospitalization)
  Sender: FDA-Public Use
  Company Number: PHEH2011US03290

PATIENT
  Sex: Female

DRUGS (2)
  1. MYFORTIC [Suspect]
     Indication: RENAL TRANSPLANT
     Dosage: 540 MG, BID
     Route: 048
     Dates: start: 20110622
  2. MYFORTIC [Suspect]
     Dosage: 360 MG, BID
     Route: 048

REACTIONS (6)
  - IMPAIRED GASTRIC EMPTYING [None]
  - HAEMOPTYSIS [None]
  - VOMITING [None]
  - COUGH [None]
  - APHASIA [None]
  - HYPERSENSITIVITY [None]
